FAERS Safety Report 9557714 (Version 1)
Quarter: 2013Q3

REPORT INFORMATION
  Report Type: Spontaneous
  Country: US (occurrence: None)
  Receive Date: 20130724
  Receipt Date: 20130724
  Transmission Date: 20140515
  Serious: Yes (Hospitalization)
  Sender: FDA-Public Use
  Company Number: PHEH2012US016193

PATIENT
  Age: 65 Year
  Sex: Male
  Weight: 84.8 kg

DRUGS (1)
  1. GLEEVEC (IMATINIB) UNKNOWN [Suspect]
     Indication: GASTROINTESTINAL STROMAL TUMOUR
     Route: 048
     Dates: start: 20031015, end: 20120319

REACTIONS (3)
  - Cardiac failure congestive [None]
  - Renal failure acute [None]
  - Ejection fraction decreased [None]
